FAERS Safety Report 23392192 (Version 1)
Quarter: 2024Q1

REPORT INFORMATION
  Report Type: Spontaneous
  Country: US (occurrence: US)
  Receive Date: 20240111
  Receipt Date: 20240111
  Transmission Date: 20240410
  Serious: No
  Sender: FDA-Public Use
  Company Number: US-PFIZER INC-202400001530

PATIENT
  Age: 49 Year
  Sex: Female

DRUGS (2)
  1. LEVOFLOXACIN [Suspect]
     Active Substance: LEVOFLOXACIN
     Indication: Kidney infection
     Dosage: UNK
     Dates: start: 20231228
  2. LEVOFLOXACIN [Suspect]
     Active Substance: LEVOFLOXACIN
     Indication: Cystitis

REACTIONS (3)
  - Skin erosion [Unknown]
  - Skin odour abnormal [Unknown]
  - Pruritus [Unknown]
